FAERS Safety Report 9160155 (Version 2)
Quarter: 2013Q1

REPORT INFORMATION
  Report Type: Spontaneous
  Country: ZA (occurrence: None)
  Receive Date: 20130219
  Receipt Date: 20130304
  Transmission Date: 20140127
  Serious: Yes (Other)
  Sender: FDA-Public Use
  Company Number: 2013P1002200

PATIENT
  Age: 4 Year
  Sex: 0

DRUGS (4)
  1. RIFAMPIN [Suspect]
  2. RIFAMPIN [Suspect]
     Indication: NECROSIS
  3. LEVOFLOXACIN [Suspect]
     Indication: MYCOBACTERIUM ULCERANS INFECTION
  4. LEVOFLOXACIN [Suspect]
     Indication: NECROSIS

REACTIONS (5)
  - Mycobacterium ulcerans infection [None]
  - Paradoxical drug reaction [None]
  - Anaemia [None]
  - Treatment failure [None]
  - Condition aggravated [None]
